FAERS Safety Report 11242031 (Version 1)
Quarter: 2015Q3

REPORT INFORMATION
  Report Type: Spontaneous
  Country: US (occurrence: US)
  Receive Date: 20150706
  Receipt Date: 20150706
  Transmission Date: 20151125
  Serious: Yes (Hospitalization, Other)
  Sender: FDA-Public Use
  Company Number: US-GLAXOSMITHKLINE-US2015GSK096865

PATIENT
  Sex: Female

DRUGS (9)
  1. FENTANYL. [Concomitant]
     Active Substance: FENTANYL
  2. VOTRIENT [Suspect]
     Active Substance: PAZOPANIB HYDROCHLORIDE
     Indication: PRODUCT USED FOR UNKNOWN INDICATION
     Dosage: 400 MG, QD
     Route: 048
     Dates: start: 201504
  3. VOTRIENT [Suspect]
     Active Substance: PAZOPANIB HYDROCHLORIDE
     Dosage: 200 MG, QD
     Route: 048
  4. TRAMADOL. [Concomitant]
     Active Substance: TRAMADOL
  5. ONDANSETRON [Concomitant]
     Active Substance: ONDANSETRON
  6. ATIVAN [Concomitant]
     Active Substance: LORAZEPAM
  7. HYDROCHLOROTHIAZIDE. [Concomitant]
     Active Substance: HYDROCHLOROTHIAZIDE
  8. LEVOTHYROXINE. [Concomitant]
     Active Substance: LEVOTHYROXINE
  9. AMLODIPINE [Concomitant]
     Active Substance: AMLODIPINE BESYLATE

REACTIONS (6)
  - Liver injury [Recovered/Resolved]
  - Delirium [Unknown]
  - Fatigue [Unknown]
  - Intestinal obstruction [Recovered/Resolved]
  - Hypertension [Unknown]
  - Constipation [Unknown]

NARRATIVE: CASE EVENT DATE: 2015
